FAERS Safety Report 8774703 (Version 1)
Quarter: 2012Q4

REPORT INFORMATION
  Report Type: 
  Country: US (occurrence: US)
  Receive Date: 20120910
  Receipt Date: 20120910
  Transmission Date: 20130627
  Serious: No
  Sender: FDA-Public Use
  Company Number: US-B.I. PHARMACEUTICALS,INC./RIDGEFIELD-2012-BP-21458BP

PATIENT
  Sex: Male
  Weight: 97 kg

DRUGS (3)
  1. SPIRIVA [Suspect]
     Indication: CHRONIC OBSTRUCTIVE PULMONARY DISEASE
     Dosage: 18 mcg
     Route: 055
     Dates: start: 201204
  2. FLOVENT [Concomitant]
     Route: 055
     Dates: start: 201203
  3. PROAIR [Concomitant]
     Route: 055
     Dates: start: 201206

REACTIONS (1)
  - Tongue disorder [Not Recovered/Not Resolved]
